FAERS Safety Report 7478346-2 (Version None)
Quarter: 2011Q2

REPORT INFORMATION
  Report Type: 
  Country: None (occurrence: None)
  Receive Date: 20110513
  Receipt Date: 20110502
  Transmission Date: 20111010
  Serious: Yes (Other)
  Sender: FDA-Public Use
  Company Number: US-JNJFOC-20110503769

PATIENT
  Age: 56 Year
  Sex: Female

DRUGS (7)
  1. DAUNORUBICIN HCL [Suspect]
     Indication: B-CELL TYPE ACUTE LEUKAEMIA
     Route: 065
  2. DEXAMETHASONE [Suspect]
     Indication: B-CELL TYPE ACUTE LEUKAEMIA
     Route: 065
  3. CYCLOPHOSPHAMIDE [Suspect]
     Indication: B-CELL TYPE ACUTE LEUKAEMIA
     Route: 065
  4. VINCRISTINE [Suspect]
     Indication: B-CELL TYPE ACUTE LEUKAEMIA
     Route: 065
  5. PREDNISONE [Suspect]
     Indication: B-CELL TYPE ACUTE LEUKAEMIA
     Route: 065
  6. ELSPAR [Suspect]
     Indication: B-CELL TYPE ACUTE LEUKAEMIA
     Route: 065
  7. DOXORUBICIN HCL [Suspect]
     Indication: B-CELL TYPE ACUTE LEUKAEMIA
     Route: 042

REACTIONS (4)
  - NEUROTOXICITY [None]
  - BONE MARROW FAILURE [None]
  - MEGACOLON [None]
  - MUCOSAL INFLAMMATION [None]
